FAERS Safety Report 7232090-5 (Version None)
Quarter: 2011Q1

REPORT INFORMATION
  Report Type: 
  Country: None (occurrence: None)
  Receive Date: 20110119
  Receipt Date: 20110112
  Transmission Date: 20110831
  Serious: Yes (Other)
  Sender: FDA-Public Use
  Company Number: DE-AMGEN-DEUSP2011002631

PATIENT

DRUGS (3)
  1. PREDNISOLONE [Concomitant]
     Dosage: 3 MG, UNK
  2. ENBREL [Suspect]
     Indication: ANKYLOSING SPONDYLITIS
     Dosage: 50 MG, WEEKLY
     Dates: start: 20100211, end: 20101224
  3. ARCOXIA [Concomitant]
     Dosage: 90 MG, ^IF REQUIRED^

REACTIONS (2)
  - HERPES ZOSTER [None]
  - ANKYLOSING SPONDYLITIS [None]
